FAERS Safety Report 8507058-9 (Version None)
Quarter: 2012Q3

REPORT INFORMATION
  Report Type: 
  Country: None (occurrence: None)
  Receive Date: 20120703
  Receipt Date: 20120702
  Transmission Date: 20120928
  Serious: Yes (Hospitalization, Disabling)
  Sender: FDA-Public Use
  Company Number: 2010SP002783

PATIENT
  Age: 24 Year
  Sex: Female

DRUGS (3)
  1. .. [Concomitant]
  2. NUVARING [Suspect]
     Indication: CONTRACEPTION
     Dosage: 1 DF;QM;VAG ; 1 DF;QM;VAG
     Route: 067
     Dates: start: 20080909, end: 20091025
  3. NUVARING [Suspect]
     Indication: CONTRACEPTION
     Dosage: 1 DF;QM;VAG ; 1 DF;QM;VAG
     Route: 067
     Dates: start: 20060517, end: 20070223

REACTIONS (24)
  - MIGRAINE [None]
  - HEMIPARESIS [None]
  - LOSS OF CONSCIOUSNESS [None]
  - HYPOTHYROIDISM [None]
  - ANXIETY [None]
  - URTICARIA [None]
  - NERVOUS SYSTEM DISORDER [None]
  - AUTOIMMUNE DISORDER [None]
  - ADJUSTMENT DISORDER [None]
  - DYSPNOEA [None]
  - DIZZINESS [None]
  - DERMATITIS ATOPIC [None]
  - HYPERTENSION [None]
  - HYPOTENSION [None]
  - ANTIPHOSPHOLIPID SYNDROME [None]
  - VISUAL IMPAIRMENT [None]
  - CEREBROVASCULAR ACCIDENT [None]
  - DEPRESSION [None]
  - FATIGUE [None]
  - ABDOMINAL PAIN [None]
  - URINE ABNORMALITY [None]
  - NERVOUSNESS [None]
  - TRANSIENT ISCHAEMIC ATTACK [None]
  - VOMITING [None]
